FAERS Safety Report 18762452 (Version 1)
Quarter: 2021Q1

REPORT INFORMATION
  Report Type: Report from Study
  Country: FR (occurrence: FR)
  Receive Date: 20210120
  Receipt Date: 20210120
  Transmission Date: 20210419
  Serious: Yes (Hospitalization, Other)
  Sender: FDA-Public Use
  Company Number: NVSC2021FR010047

PATIENT
  Age: 54 Year
  Sex: Male
  Weight: 62 kg

DRUGS (20)
  1. VINCRISTINE [Suspect]
     Active Substance: VINCRISTINE
     Indication: PRODUCT USED FOR UNKNOWN INDICATION
     Dosage: 2 MG
     Route: 042
     Dates: start: 20201203
  2. METHOTREXATE. [Suspect]
     Active Substance: METHOTREXATE
     Indication: PRODUCT USED FOR UNKNOWN INDICATION
     Dosage: 15  MG
     Route: 042
     Dates: start: 20201204
  3. MOVICOL [Concomitant]
     Active Substance: POLYETHYLENE GLYCOL 3350\POTASSIUM CHLORIDE\SODIUM BICARBONATE\SODIUM CHLORIDE
     Dosage: 2 PACKETS
     Route: 065
  4. TENOFOVIR [Concomitant]
     Active Substance: TENOFOVIR
     Indication: PROPHYLAXIS
     Dosage: 245  MG
     Route: 048
     Dates: start: 20201126
  5. AMOXICILLIN. [Concomitant]
     Active Substance: AMOXICILLIN
     Indication: PRODUCT USED FOR UNKNOWN INDICATION
     Dosage: 1 G,3TIMES A DAY
     Route: 065
  6. CANCIDAS [Concomitant]
     Active Substance: CASPOFUNGIN ACETATE
     Indication: PROPHYLAXIS
     Dosage: 50 MG
     Route: 042
     Dates: start: 20201126
  7. PANTOPRAZOLE [Concomitant]
     Active Substance: PANTOPRAZOLE
     Indication: PROPHYLAXIS AGAINST GASTROINTESTINAL ULCER
     Dosage: 20 MG
     Route: 048
     Dates: start: 20201211
  8. PANTOPRAZOLE [Concomitant]
     Active Substance: PANTOPRAZOLE
     Dosage: 40 MG
     Route: 065
  9. NEFOPAM [Concomitant]
     Active Substance: NEFOPAM
     Indication: PAIN
     Dosage: 40 MG
     Route: 042
     Dates: start: 20201206
  10. SPASFON [Concomitant]
     Indication: ABDOMINAL PAIN
     Dosage: 40 MG
     Route: 042
     Dates: start: 20201214
  11. VALACICLOVIR [Concomitant]
     Active Substance: VALACYCLOVIR HYDROCHLORIDE
     Indication: PROPHYLAXIS
     Dosage: 1 G
     Route: 048
     Dates: start: 20201125
  12. DEXAMETHASONE. [Suspect]
     Active Substance: DEXAMETHASONE
     Indication: PRODUCT USED FOR UNKNOWN INDICATION
     Dosage: 40 MG
     Route: 042
     Dates: start: 20201203
  13. WELLVONE [Concomitant]
     Active Substance: ATOVAQUONE
     Indication: PROPHYLAXIS
     Dosage: 1500 MG
     Route: 048
     Dates: start: 20201125
  14. MOVICOL [Concomitant]
     Active Substance: POLYETHYLENE GLYCOL 3350\POTASSIUM CHLORIDE\SODIUM BICARBONATE\SODIUM CHLORIDE
     Indication: CONSTIPATION
     Dosage: 2 UL
     Route: 048
     Dates: start: 20201202
  15. NILOTINIB [Suspect]
     Active Substance: NILOTINIB
     Indication: ACUTE LYMPHOCYTIC LEUKAEMIA
     Dosage: 800 MG
     Route: 048
     Dates: start: 20201203, end: 20201217
  16. CYTARABIN [Suspect]
     Active Substance: CYTARABINE
     Indication: PRODUCT USED FOR UNKNOWN INDICATION
     Dosage: 40 MG
     Route: 042
     Dates: start: 20201204
  17. TAZOCILLINE [Concomitant]
     Active Substance: PIPERACILLIN SODIUM\TAZOBACTAM SODIUM
     Indication: PROPHYLAXIS
     Dosage: 2 G
     Route: 042
     Dates: start: 20201121
  18. MORPHINE [Concomitant]
     Active Substance: MORPHINE
     Indication: PAIN
     Dosage: 1 MG
     Route: 042
     Dates: start: 20201210
  19. DUROGESIC [Concomitant]
     Active Substance: FENTANYL
     Indication: PRODUCT USED FOR UNKNOWN INDICATION
     Dosage: 100 UG
     Route: 065
  20. FORTRANS [Concomitant]
     Active Substance: POLYETHYLENE GLYCOL 4000\POTASSIUM CHLORIDE\SODIUM BICARBONATE\SODIUM CHLORIDE\SODIUM SULFATE
     Indication: CONSTIPATION
     Dosage: 1 UL
     Route: 048
     Dates: start: 20201215

REACTIONS (1)
  - Vascular dissection [Unknown]

NARRATIVE: CASE EVENT DATE: 20201215
